FAERS Safety Report 8835908 (Version 1)
Quarter: 2012Q4

REPORT INFORMATION
  Report Type: 
  Country: BR (occurrence: BR)
  Receive Date: 20121011
  Receipt Date: 20121011
  Transmission Date: 20130627
  Serious: Yes (Other)
  Sender: FDA-Public Use
  Company Number: BR-009507513-1210BRA004640

PATIENT
  Sex: Female
  Weight: 52 kg

DRUGS (2)
  1. PEG-INTRON [Suspect]
     Indication: HEPATITIS C
     Dosage: 80 Microgram, qw
     Dates: start: 201101, end: 201112
  2. REBETOL [Suspect]
     Indication: HEPATITIS C
     Route: 048

REACTIONS (12)
  - Thyroid operation [Unknown]
  - Hypothyroidism [Not Recovered/Not Resolved]
  - Nausea [Recovered/Resolved]
  - Pain [Recovered/Resolved]
  - Asthenia [Recovered/Resolved]
  - Alopecia [Recovered/Resolved]
  - Weight decreased [Recovered/Resolved]
  - Pyrexia [Recovered/Resolved]
  - Feeding disorder [Unknown]
  - Arrhythmia [Unknown]
  - Tachycardia [Unknown]
  - Viral load [Unknown]
